FAERS Safety Report 4378989-9 (Version None)
Quarter: 2004Q2

REPORT INFORMATION
  Report Type: 
  Country: None (occurrence: None)
  Receive Date: 20040601
  Receipt Date: 20040319
  Transmission Date: 20050107
  Serious: No
  Sender: FDA-Public Use
  Company Number: WAES 0403USA01910

PATIENT
  Age: 79 Year
  Sex: Male

DRUGS (2)
  1. ZETIA [Suspect]
     Indication: VASOSPASM
     Dosage: 10 MG/DAILY/PO
     Route: 048
  2. LIPITOR [Concomitant]

REACTIONS (1)
  - VASOSPASM [None]
